FAERS Safety Report 7796723-7 (Version None)
Quarter: 2011Q4

REPORT INFORMATION
  Report Type: 
  Country: None (occurrence: None)
  Receive Date: 20111003
  Receipt Date: 20110927
  Transmission Date: 20120403
  Serious: Yes (Hospitalization, Other)
  Sender: FDA-Public Use
  Company Number: TIR-00653

PATIENT
  Age: 29 Year
  Sex: Female

DRUGS (1)
  1. LEVOTHYROXINE SODIUM [Suspect]
     Indication: HYPOTHYROIDISM

REACTIONS (6)
  - POLYHYDRAMNIOS [None]
  - PREMATURE RUPTURE OF MEMBRANES [None]
  - MATERNAL EXPOSURE DURING PREGNANCY [None]
  - PREMATURE DELIVERY [None]
  - ABDOMINAL PAIN [None]
  - UTERINE CONTRACTIONS ABNORMAL [None]
